FAERS Safety Report 11970601 (Version 1)
Quarter: 2016Q1

REPORT INFORMATION
  Report Type: Spontaneous
  Country: US (occurrence: None)
  Receive Date: 20160126
  Receipt Date: 20160126
  Transmission Date: 20160526
  Serious: Yes (Hospitalization)
  Sender: FDA-Public Use
  Company Number: None

PATIENT
  Age: 67 Year
  Sex: Male
  Weight: 73.1 kg

DRUGS (1)
  1. LISINOPRIL. [Suspect]
     Active Substance: LISINOPRIL
     Indication: HYPERSENSITIVITY
     Dosage: MG
     Route: 048
     Dates: start: 20150910, end: 20150910

REACTIONS (1)
  - Angioedema [None]

NARRATIVE: CASE EVENT DATE: 20150910
